FAERS Safety Report 6998421-6 (Version None)
Quarter: 2010Q3

REPORT INFORMATION
  Report Type: 
  Country: None (occurrence: None)
  Receive Date: 20100920
  Receipt Date: 20100906
  Transmission Date: 20110219
  Serious: Yes (Hospitalization)
  Sender: FDA-Public Use
  Company Number: TR-JNJFOC-20070402850

PATIENT
  Age: 26 Year
  Sex: Male

DRUGS (2)
  1. REMICADE [Suspect]
     Indication: BEHCET'S SYNDROME
     Dosage: 1 EVERY 8 WEEKS; INITIATED JAN-2005 AND STOPPED IN 2005
     Route: 042
  2. ISONIAZID [Concomitant]
     Indication: PULMONARY TUBERCULOSIS

REACTIONS (1)
  - PULMONARY TUBERCULOSIS [None]
